FAERS Safety Report 9026886 (Version 2)
Quarter: 2013Q1

REPORT INFORMATION
  Report Type: Spontaneous
  Country: US (occurrence: US)
  Receive Date: 20130123
  Receipt Date: 20130208
  Transmission Date: 20140127
  Serious: No
  Sender: FDA-Public Use
  Company Number: US-PFIZER INC-2013023857

PATIENT
  Age: 62 Year
  Sex: Female

DRUGS (9)
  1. CELEBREX [Suspect]
     Dosage: UNK
  2. HYDROCORTISONE [Suspect]
     Dosage: UNK
  3. MORPHINE SULFATE [Suspect]
     Dosage: UNK
  4. OMEPRAZOLE [Suspect]
     Dosage: UNK
  5. ROFECOXIB [Suspect]
     Dosage: UNK
  6. VICODIN [Suspect]
     Dosage: UNK
  7. ACTONEL [Suspect]
     Dosage: UNK
  8. BIAXIN [Suspect]
     Dosage: UNK
  9. MASTISOL [Suspect]
     Dosage: UNK

REACTIONS (1)
  - Drug hypersensitivity [Unknown]
